FAERS Safety Report 20038326 (Version 1)
Quarter: 2021Q4

REPORT INFORMATION
  Report Type: Report from Study
  Country: RU (occurrence: RU)
  Receive Date: 20211105
  Receipt Date: 20211105
  Transmission Date: 20220303
  Serious: Yes (Other)
  Sender: FDA-Public Use
  Company Number: RU-SERVIER-S21011801

PATIENT

DRUGS (15)
  1. PEGASPARGASE [Suspect]
     Active Substance: PEGASPARGASE
     Indication: B-cell type acute leukaemia
     Dosage: 1625 U (2500 U/M???), ON DAY 3 DURING THE INDUCTION PHASE
     Route: 042
     Dates: start: 20210621, end: 20210621
  2. DEXAMETHASONE [Suspect]
     Active Substance: DEXAMETHASONE
     Indication: B-cell type acute leukaemia
     Dosage: 0.5 MG, DAILY, IN ACCORDANCE WITH TREATMENT ARM B
     Route: 048
     Dates: start: 20210615, end: 20210616
  3. DEXAMETHASONE [Suspect]
     Active Substance: DEXAMETHASONE
     Dosage: 2 MG, DAILY, IN ACCORDANCE WITH TREATMENT ARM B
     Route: 037
     Dates: start: 20210615, end: 20210720
  4. DEXAMETHASONE [Suspect]
     Active Substance: DEXAMETHASONE
     Dosage: 3 MG, DAILY, IN ACCORDANCE WITH TREATMENT ARM B
     Route: 051
     Dates: start: 20210617, end: 20210720
  5. VINCRISTINE SULFATE [Suspect]
     Active Substance: VINCRISTINE SULFATE
     Indication: B-cell type acute leukaemia
     Dosage: 1 MG, DAILY, IN ACCORDANCE WITH TREATMENT ARM B
     Route: 051
     Dates: start: 20210622, end: 20210720
  6. DAUNORUBICIN [Suspect]
     Active Substance: DAUNORUBICIN
     Indication: B-cell type acute leukaemia
     Dosage: 30 MG, DAILY, IN ACCORDANCE WITH TREATMENT ARM B
     Route: 051
     Dates: start: 20210622, end: 20210706
  7. CYTARABINE [Concomitant]
     Active Substance: CYTARABINE
     Indication: B-cell type acute leukaemia
     Dosage: 50 MG, DAILY, IN ACCORDANCE WITH TREATMENT ARM B
     Route: 037
     Dates: start: 20210615, end: 20210720
  8. METHOTREXATE [Concomitant]
     Active Substance: METHOTREXATE
     Indication: B-cell type acute leukaemia
     Dosage: 12 MG, DAILY, IN ACCORDANCE WITH TREATMENT ARM B
     Route: 037
     Dates: start: 20210615, end: 20210720
  9. CEFOTAXIME SODIUM [Concomitant]
     Active Substance: CEFOTAXIME SODIUM
     Indication: Prophylaxis
     Dosage: 750 MG, TID
     Route: 051
     Dates: start: 20210610, end: 20210627
  10. SULBACTAM SODIUM [Concomitant]
     Active Substance: SULBACTAM SODIUM
     Indication: Prophylaxis
     Dosage: 1440 MG, 1X/WEEK
     Route: 048
     Dates: start: 20210610
  11. SULFAMETHOXAZOLE\TRIMETHOPRIM [Concomitant]
     Active Substance: SULFAMETHOXAZOLE\TRIMETHOPRIM
     Indication: Hypertension
     Dosage: 2.5 MG, BID
     Route: 048
     Dates: start: 20210616, end: 20210720
  12. ENALAPRIL MALEATE [Concomitant]
     Active Substance: ENALAPRIL MALEATE
     Indication: Gastritis prophylaxis
     Dosage: 7 MG, BID
     Route: 051
     Dates: start: 20210618, end: 20210719
  13. FAMOTIDINE [Concomitant]
     Active Substance: FAMOTIDINE
     Indication: Vomiting
     Dosage: 1.5 ML, QD
     Route: 051
     Dates: start: 20210619, end: 20210625
  14. METOCLOPRAMIDE HYDROCHLORIDE [Concomitant]
     Active Substance: METOCLOPRAMIDE HYDROCHLORIDE
     Indication: Vomiting
     Dosage: 0.3 ML, BID
     Route: 051
     Dates: start: 20210621, end: 20210625
  15. GRANISETRON HYDROCHLORIDE [Concomitant]
     Active Substance: GRANISETRON HYDROCHLORIDE

REACTIONS (1)
  - Neutropenic colitis [Recovered/Resolved]

NARRATIVE: CASE EVENT DATE: 20210624
